FAERS Safety Report 16072970 (Version 3)
Quarter: 2019Q2

REPORT INFORMATION
  Report Type: Spontaneous
  Country: FR (occurrence: FR)
  Receive Date: 20190314
  Receipt Date: 20190424
  Transmission Date: 20190711
  Serious: Yes (Hospitalization, Other)
  Sender: FDA-Public Use
  Company Number: FR-MYLANLABS-2019M1023162

PATIENT
  Age: 6 Month
  Sex: Male

DRUGS (2)
  1. URSODEOXYCHOLIC ACID [Suspect]
     Active Substance: URSODIOL
     Indication: CHOLESTASIS
     Dosage: 600 MILLIGRAM/SQ. METER, QD (600 MG/M2, QD IN TWO DOSES)
  2. RIFADINE                           /00146901/ [Suspect]
     Active Substance: RIFAMPIN
     Indication: CHOLESTATIC PRURITUS
     Dosage: UNK

REACTIONS (6)
  - Intentional product misuse [Unknown]
  - Crying [Unknown]
  - Off label use [Unknown]
  - Drug ineffective [Unknown]
  - Sleep disorder [Unknown]
  - Product use issue [Unknown]
